FAERS Safety Report 6603895-6 (Version None)
Quarter: 2010Q1

REPORT INFORMATION
  Report Type: 
  Country: None (occurrence: None)
  Receive Date: 20100226
  Receipt Date: 20090310
  Transmission Date: 20100710
  Serious: No
  Sender: FDA-Public Use
  Company Number: A0772541A

PATIENT
  Age: 51 Year
  Sex: Female

DRUGS (5)
  1. LAMICTAL CD [Suspect]
     Indication: MOOD SWINGS
     Dosage: 200MG PER DAY
     Route: 048
     Dates: start: 20081201
  2. SYNTHROID [Concomitant]
  3. LEXAPRO [Concomitant]
  4. PREVACID [Concomitant]
  5. LORAZEPAM [Concomitant]

REACTIONS (1)
  - DRUG INEFFECTIVE [None]
